FAERS Safety Report 8317917-8 (Version None)
Quarter: 2012Q2

REPORT INFORMATION
  Report Type: 
  Country: None (occurrence: None)
  Receive Date: 20120427
  Receipt Date: 20120423
  Transmission Date: 20120825
  Serious: Yes (Other)
  Sender: FDA-Public Use
  Company Number: US-FRI-1000030016

PATIENT
  Sex: Female

DRUGS (1)
  1. BYSTOLIC [Suspect]

REACTIONS (1)
  - LIVER FUNCTION TEST ABNORMAL [None]
